FAERS Safety Report 17679576 (Version 2)
Quarter: 2020Q2

REPORT INFORMATION
  Report Type: Report from Study
  Country: CN (occurrence: CN)
  Receive Date: 20200417
  Receipt Date: 20200424
  Transmission Date: 20200714
  Serious: Yes (Death)
  Sender: FDA-Public Use
  Company Number: CN-PFIZER INC-2020157757

PATIENT
  Age: 44 Month
  Sex: Male

DRUGS (46)
  1. METHOTREXATE. [Suspect]
     Active Substance: METHOTREXATE
     Dosage: TRIPLE INTRATHECAL INJECTION, DAYS 5, 8,12, 15, AND 19 IN REMISSION INDUCTION AND CONSOLIDATION PHAS
     Route: 037
  2. CYTARABINE. [Suspect]
     Active Substance: CYTARABINE
     Dosage: 300 MG/M2, DAILY (COURSE-2 (7 CYCLES): EVERY 8 WEEKS, DAY 50)
     Route: 042
  3. CALCIUM FOLINATE [Suspect]
     Active Substance: LEUCOVORIN CALCIUM
     Indication: TOXICITY TO VARIOUS AGENTS
     Dosage: 15 MG/M2, 4X/DAY Q6H 42 H AFTER MTX ADMINISTRATION, AT LEAST 3 DOSES
     Route: 030
  4. MERCAPTOPURINE. [Suspect]
     Active Substance: MERCAPTOPURINE
     Dosage: 50 MG/M2, DAILY (COURSE-3 (2 CYCLES), DAYS 1 TO 56)
     Route: 048
  5. PREDNISONE. [Suspect]
     Active Substance: PREDNISONE
     Dosage: UNK, CYCLIC (TAPERING AFTER 9 DAYS)
  6. METHOTREXATE. [Suspect]
     Active Substance: METHOTREXATE
     Indication: ACUTE LYMPHOCYTIC LEUKAEMIA
     Dosage: UNK, CYCLIC (HIGH-DOSE)
  7. METHOTREXATE. [Suspect]
     Active Substance: METHOTREXATE
     Dosage: 25 MG/M2, DAILY, MAINTENANCE (DAYS 1, 8, 15, 22, 29, 36, AND 42, COURSE-2 (7 CYCLES, EVERY 8 WEEKS
     Route: 048
  8. DAUNORUBICIN [Suspect]
     Active Substance: DAUNORUBICIN
     Indication: ACUTE LYMPHOCYTIC LEUKAEMIA
     Dosage: 25 MG/M2, DAILY (REMISSION INDUCTION, DAYS 5 AND 12)
     Route: 042
  9. VINCRISTINE [Suspect]
     Active Substance: VINCRISTINE
     Indication: ACUTE LYMPHOCYTIC LEUKAEMIA
     Dosage: 1.5 MG/M2, DAILY (MAX: 2 MG) (REMISSION INDUCTION, DAYS 5, 12, 19, AND 22)
     Route: 042
  10. CYCLOPHOSPHAMIDE. [Suspect]
     Active Substance: CYCLOPHOSPHAMIDE
     Indication: ACUTE LYMPHOCYTIC LEUKAEMIA
     Dosage: UNK, DAILY (1 G//M2/D) (REMISSION INDUCTION, DAYS 29)
     Route: 042
  11. MERCAPTOPURINE. [Suspect]
     Active Substance: MERCAPTOPURINE
     Indication: ACUTE LYMPHOCYTIC LEUKAEMIA
     Dosage: 50 MG/M2, DAILY (REMISSION INDUCTION, DAYS 29 TO 35)
     Route: 048
  12. PEG/L-ASPARAGINASE [Suspect]
     Active Substance: PEGASPARGASE
     Dosage: UNK, DAILY (2000 U/M2/D) (REINDUCTION OF REMISSION, DAY 3)
     Route: 030
  13. PREDNISONE. [Suspect]
     Active Substance: PREDNISONE
     Dosage: TRIPLE INTRATHECAL INJECTION, MAINTENANCE, DAY 15 IN COURSE-1 DAY 50 IN COURSE-2
     Route: 037
  14. CYTARABINE. [Suspect]
     Active Substance: CYTARABINE
     Dosage: UNK, 2X/DAY (2 G/M2, Q12H) (REINDUCTION OF REMISSION- DAYS 1 AND 2)
  15. CYTARABINE. [Suspect]
     Active Substance: CYTARABINE
     Dosage: 300 MG/M2, DAILY (MAINTENANCE COURSE-1 (5 CYCLES), EVERY 4 WEEKS, DAY 15)
     Route: 042
  16. CYTARABINE. [Suspect]
     Active Substance: CYTARABINE
     Dosage: TRIPLE INTRATHECAL INJECTION, DAY 1, INTERPHASE, REINDUCTION OF REMISSION
     Route: 037
  17. MERCAPTOPURINE. [Suspect]
     Active Substance: MERCAPTOPURINE
     Dosage: 25 MG/M2, DAILY (CONSOLIDATION, DAYS 1 TO 56)
     Route: 048
  18. MERCAPTOPURINE. [Suspect]
     Active Substance: MERCAPTOPURINE
     Dosage: 50 MG/M2, DAILY (COURSE-2 (7 CYCLES): EVERY 8 WEEKS, DAYS 1 TO 49)
     Route: 048
  19. DEXAMETHASONE. [Suspect]
     Active Substance: DEXAMETHASONE
     Dosage: 12 MG/M2, DAILY (INTERPHASE X 5 CYCLES: EVERY 3 WEEKS, DAYS 1-5)
     Route: 048
  20. DEXAMETHASONE. [Suspect]
     Active Substance: DEXAMETHASONE
     Dosage: 8 MG/M2, DAILY (REINDUCTION OF REMISSION, DAYS 1 TO 7 AND 15 TO 21)
     Route: 048
  21. DEXAMETHASONE. [Suspect]
     Active Substance: DEXAMETHASONE
     Dosage: 8 MG/M2, DAILY (MAINTENANCE COURSE-1 (5 CYCLES): EVERY 4 WEEKS, DAYS 15 TO 21)
     Route: 048
  22. VINCRISTINE [Suspect]
     Active Substance: VINCRISTINE
     Dosage: 1.5 MG/M2, DAILY (MAX: 2 MG) (MAINTENANCE COURSE-1 (5 CYCLES): EVERY 4 WEEKS, DAY 15)
     Route: 042
  23. CYCLOPHOSPHAMIDE. [Suspect]
     Active Substance: CYCLOPHOSPHAMIDE
     Dosage: 300 MG/M2, DAILY (COURSE-2 (7 CYCLES): EVERY 8 WEEKS, DAY 50)
     Route: 042
  24. METHOTREXATE. [Suspect]
     Active Substance: METHOTREXATE
     Dosage: 25 MG/M2, DAILY (DAYS 1 TO 56, COURSE-3 (2 CYCLES)
     Route: 048
  25. METHOTREXATE. [Suspect]
     Active Substance: METHOTREXATE
     Dosage: TRIPLE INTRATHECAL INJECTION, DAY 1, INTERPHASE, REINDUCTION OF REMISSION
     Route: 037
  26. CYTARABINE. [Suspect]
     Active Substance: CYTARABINE
     Dosage: TRIPLE INTRATHECAL INJECTION, DAYS 5, 8,12, 15, AND 19 IN REMISSION INDUCTION AND CONSOLIDATION
     Route: 037
  27. PREDNISONE. [Suspect]
     Active Substance: PREDNISONE
     Dosage: TRIPLE INTRATHECAL INJECTION, DAY 1, INTERPHASE, REINDUCTION OF REMISSION
     Route: 037
  28. CYTARABINE. [Suspect]
     Active Substance: CYTARABINE
     Indication: ACUTE LYMPHOCYTIC LEUKAEMIA
     Dosage: 50 MG/M2, 2X/DAY (REMISSION INDUCTION- Q12H, IH, DAYS 29 TO 35)
     Route: 058
  29. DEXAMETHASONE. [Suspect]
     Active Substance: DEXAMETHASONE
     Indication: ACUTE LYMPHOCYTIC LEUKAEMIA
     Dosage: 8 MG/M2, DAILY (REMISSION INDUCTION, DAYS 1-4)
     Route: 048
  30. DEXAMETHASONE. [Suspect]
     Active Substance: DEXAMETHASONE
     Dosage: 8 MG/M2, DAILY (COURSE-2 (7 CYCLES): EVERY 8 WEEKS, DAYS 50 TO 56)
     Route: 048
  31. DAUNORUBICIN [Suspect]
     Active Substance: DAUNORUBICIN
     Dosage: 25 MG/M2, DAILY (INTERPHASE X 5 CYCLES: EVERY 3 WEEKS, DAY 1)
     Route: 042
  32. CYCLOPHOSPHAMIDE. [Suspect]
     Active Substance: CYCLOPHOSPHAMIDE
     Dosage: 300 MG/M2, DAILY (MAINTENANCE COURSE-1 (5 CYCLES): EVERY 4 WEEKS, DAY 15)
     Route: 042
  33. PREDNISONE. [Suspect]
     Active Substance: PREDNISONE
     Indication: ACUTE LYMPHOCYTIC LEUKAEMIA
     Dosage: 60 MG/M2, DAILY (REMISSION INDUCTION, DAYS 5-28)
     Route: 048
  34. METHOTREXATE. [Suspect]
     Active Substance: METHOTREXATE
     Dosage: 25 MG/M2, DAILY (DAY 1 AND 8, MAINTENANCE COURSE-1 (5 CYCLES), EVERY 4 WEEKS)
     Route: 048
  35. METHOTREXATE. [Suspect]
     Active Substance: METHOTREXATE
     Dosage: TRIPLE INTRATHECAL INJECTION, MAINTENANCE, DAY 15 IN COURSE-1 DAY 50 IN COURSE-2
     Route: 037
  36. VINCRISTINE [Suspect]
     Active Substance: VINCRISTINE
     Dosage: 1.5 MG/M2, DAILY (MAX: 2 MG) (COURSE-2 (7 CYCLES): EVERY 8 WEEKS, DAY 50)
     Route: 042
  37. MERCAPTOPURINE. [Suspect]
     Active Substance: MERCAPTOPURINE
     Dosage: 50 MG/M2, DAILY (MAINTENANCE COURSE-1 (5 CYCLES): EVERY 4 WEEKS, DAYS 1 TO 14)
     Route: 048
  38. PEG/L-ASPARAGINASE [Suspect]
     Active Substance: PEGASPARGASE
     Indication: ACUTE LYMPHOCYTIC LEUKAEMIA
     Dosage: UNK, DAILY (2000 U/M2/D) (REMISSION INDUCTION, DAYS 6 AND 26)
     Route: 030
  39. PEG/L-ASPARAGINASE [Suspect]
     Active Substance: PEGASPARGASE
     Dosage: UNK, DAILY (2000 U/M2/D) (INTERPHASE X 5 CYCLES: EVERY 3 WEEKS, DAY 3)
     Route: 030
  40. METHOTREXATE. [Suspect]
     Active Substance: METHOTREXATE
     Dosage: UNK, DAILY 5 G/M2/D (CONSOLIDATION- DAYS 1, 15, 29, AND 43)
     Route: 042
  41. CYTARABINE. [Suspect]
     Active Substance: CYTARABINE
     Dosage: TRIPLE INTRATHECAL INJECTION, MAINTENANCE, DAY 15 IN COURSE-1 DAY 50 IN COURSE-2
     Route: 037
  42. DEXAMETHASONE. [Suspect]
     Active Substance: DEXAMETHASONE
     Dosage: 8 MG/M2, DAILY (REMISSION INDUCTION, DAYS 1-4)
     Route: 042
  43. VINCRISTINE [Suspect]
     Active Substance: VINCRISTINE
     Dosage: UNK, CYCLIC (REINDUCTION OF REMISSION, DAYS 1, 8, AND 15)
  44. VINCRISTINE [Suspect]
     Active Substance: VINCRISTINE
     Dosage: 1.5 MG/M2, DAILY (MAX: 2 MG) (INTERPHASE X 5 CYCLES: EVERY 3 WEEKS, DAY 1)
     Route: 042
  45. MERCAPTOPURINE. [Suspect]
     Active Substance: MERCAPTOPURINE
     Dosage: 25 MG/M2, DAILY (INTERPHASE X 5 CYCLES: EVERY 3 WEEKS, DAYS 1 TO 21)
     Route: 048
  46. PREDNISONE. [Suspect]
     Active Substance: PREDNISONE
     Dosage: TRIPLE INTRATHECAL INJECTION, DAYS 5, 8,12, 15, AND 19 IN REMISSION INDUCTION AND CONSOLIDATION PHAS
     Route: 037

REACTIONS (2)
  - Sepsis [Fatal]
  - Bone marrow failure [Fatal]
